FAERS Safety Report 16975440 (Version 2)
Quarter: 2019Q4

REPORT INFORMATION
  Report Type: Spontaneous
  Country: IN (occurrence: IN)
  Receive Date: 20191030
  Receipt Date: 20191104
  Transmission Date: 20200122
  Serious: Yes (Hospitalization, Other)
  Sender: FDA-Public Use
  Company Number: IN-STRIDES ARCOLAB LIMITED-2019SP010581

PATIENT
  Age: 33 Year
  Sex: Male

DRUGS (2)
  1. CYPROHEPTADINE. [Suspect]
     Active Substance: CYPROHEPTADINE
     Indication: PRODUCT USED FOR UNKNOWN INDICATION
     Dosage: UNK, TABLETS
     Route: 048
  2. DEXAMETHASONE. [Suspect]
     Active Substance: DEXAMETHASONE
     Indication: PRODUCT USED FOR UNKNOWN INDICATION
     Dosage: UNK, TABLETS
     Route: 048

REACTIONS (9)
  - Weight increased [Unknown]
  - Dysstasia [Recovered/Resolved]
  - Gait inability [Recovered/Resolved]
  - Intentional product misuse [Unknown]
  - Hypokalaemia [Recovered/Resolved]
  - Tachypnoea [Recovered/Resolved]
  - Increased appetite [Unknown]
  - Quadriparesis [Recovered/Resolved]
  - Loss of personal independence in daily activities [Recovered/Resolved]
